FAERS Safety Report 8345956-X (Version None)
Quarter: 2012Q2

REPORT INFORMATION
  Report Type: 
  Country: None (occurrence: None)
  Receive Date: 20120507
  Receipt Date: 20120426
  Transmission Date: 20120825
  Serious: Yes (Hospitalization)
  Sender: FDA-Public Use
  Company Number: 2012SP022504

PATIENT
  Sex: Male

DRUGS (2)
  1. VICTRELIS [Suspect]
  2. METHADONE HCL [Concomitant]

REACTIONS (1)
  - LUNG INFECTION [None]
